FAERS Safety Report 6056152-3 (Version None)
Quarter: 2009Q1

REPORT INFORMATION
  Report Type: 
  Country: None (occurrence: None)
  Receive Date: 20090129
  Receipt Date: 20090116
  Transmission Date: 20090719
  Serious: Yes (Death)
  Sender: FDA-Public Use
  Company Number: US-RANBAXY-2009RR-21223

PATIENT
  Age: 48 Year
  Sex: Male

DRUGS (2)
  1. METHOCARBAMOL [Suspect]
     Indication: COMPLETED SUICIDE
     Route: 048
  2. CYCLOBENZAPRINE HCL [Suspect]
     Indication: COMPLETED SUICIDE
     Route: 048

REACTIONS (1)
  - COMPLETED SUICIDE [None]
